FAERS Safety Report 9696212 (Version 3)
Quarter: 2014Q1

REPORT INFORMATION
  Report Type: Report from Study
  Country: US (occurrence: US)
  Receive Date: 20131119
  Receipt Date: 20140106
  Transmission Date: 20141002
  Serious: Yes (Other)
  Sender: FDA-Public Use
  Company Number: PHEH2013US024078

PATIENT
  Age: 15 Year
  Sex: Male
  Weight: 63.39 kg

DRUGS (2)
  1. TRILEPTAL [Suspect]
     Indication: EPILEPSY
     Dosage: 600 MG, QD
     Route: 048
     Dates: start: 20130204
  2. TRILEPTAL [Suspect]
     Dosage: 20 ML BID
     Route: 048
     Dates: end: 20131107

REACTIONS (7)
  - Convulsion [Recovered/Resolved]
  - Dizziness [Recovering/Resolving]
  - Somnolence [Recovering/Resolving]
  - Nasopharyngitis [Unknown]
  - Vomiting [Unknown]
  - Confusional state [Unknown]
  - Asthenia [Unknown]
